FAERS Safety Report 22114252 (Version 1)
Quarter: 2023Q1

REPORT INFORMATION
  Report Type: Spontaneous
  Country: US (occurrence: None)
  Receive Date: 20230317
  Receipt Date: 20230317
  Transmission Date: 20230418
  Serious: No
  Sender: FDA-Public Use
  Company Number: None

PATIENT
  Age: 33 Year
  Sex: Female
  Weight: 72.57 kg

DRUGS (4)
  1. DUPIXENT [Suspect]
     Active Substance: DUPILUMAB
     Route: 048
  2. ANTIHISTAMINE [Concomitant]
  3. BUSPIRONE [Concomitant]
  4. CYCLOBENZAPINE [Concomitant]

REACTIONS (1)
  - Drug ineffective [None]
